FAERS Safety Report 13655733 (Version 4)
Quarter: 2018Q1

REPORT INFORMATION
  Report Type: Spontaneous
  Country: US (occurrence: US)
  Receive Date: 20170615
  Receipt Date: 20180326
  Transmission Date: 20180508
  Serious: Yes (Hospitalization)
  Sender: FDA-Public Use
  Company Number: US-PFIZER INC-2017263242

PATIENT
  Age: 77 Year
  Sex: Female
  Weight: 102.49 kg

DRUGS (6)
  1. LYRICA [Suspect]
     Active Substance: PREGABALIN
     Dosage: 75 MG, 2X/DAY (TWO A DAY)
     Route: 048
     Dates: start: 201708
  2. LISINOPRIL. [Concomitant]
     Active Substance: LISINOPRIL
     Indication: HYPERTENSION
     Dosage: 10 MG, 1X/DAY
  3. LYRICA [Suspect]
     Active Substance: PREGABALIN
     Indication: FIBROMYALGIA
     Dosage: 75 MG, 2X/DAY
     Dates: start: 20170615
  4. LYRICA [Suspect]
     Active Substance: PREGABALIN
     Indication: PAIN
     Dosage: 75 MG, 1X/DAY
  5. ASPRIN [Concomitant]
     Active Substance: ASPIRIN
     Dosage: UNK
  6. VITAMIN D3 [Concomitant]
     Active Substance: CHOLECALCIFEROL
     Dosage: UNK

REACTIONS (12)
  - Paraesthesia [Recovering/Resolving]
  - Gingival pain [Unknown]
  - Pain [Not Recovered/Not Resolved]
  - Confusional state [Recovered/Resolved]
  - Gingival disorder [Unknown]
  - Drug ineffective [Not Recovered/Not Resolved]
  - Nervousness [Unknown]
  - Mood altered [Unknown]
  - Oral disorder [Unknown]
  - Headache [Not Recovered/Not Resolved]
  - Insomnia [Unknown]
  - Visual impairment [Unknown]
